FAERS Safety Report 25605100 (Version 1)
Quarter: 2025Q3

REPORT INFORMATION
  Report Type: Spontaneous
  Country: US (occurrence: US)
  Receive Date: 20250725
  Receipt Date: 20250725
  Transmission Date: 20251021
  Serious: Yes (Other)
  Sender: ZYDUS PHARM
  Company Number: US-CADILA HEALTHCARE LIMITED-US-ZYDUS-126369

PATIENT

DRUGS (4)
  1. GABAPENTIN [Suspect]
     Active Substance: GABAPENTIN
     Indication: Product used for unknown indication
     Route: 065
  2. GABAPENTIN [Suspect]
     Active Substance: GABAPENTIN
     Route: 065
  3. PRAMIPEXOLE [Suspect]
     Active Substance: PRAMIPEXOLE
     Indication: Restless legs syndrome
     Route: 065
  4. GUANFACINE [Suspect]
     Active Substance: GUANFACINE
     Indication: Attention deficit hyperactivity disorder
     Route: 065

REACTIONS (3)
  - Restless leg augmentation syndrome [Not Recovered/Not Resolved]
  - Irritability [Unknown]
  - Abnormal behaviour [Unknown]
